FAERS Safety Report 18086600 (Version 3)
Quarter: 2020Q3

REPORT INFORMATION
  Report Type: Spontaneous
  Country: FR (occurrence: FR)
  Receive Date: 20200729
  Receipt Date: 20200915
  Transmission Date: 20201103
  Serious: Yes (Other)
  Sender: FDA-Public Use
  Company Number: NVSC2020FR206904

PATIENT
  Sex: Female
  Weight: 60 kg

DRUGS (5)
  1. RABEPRAZOLE [Concomitant]
     Active Substance: RABEPRAZOLE
     Indication: PRODUCT USED FOR UNKNOWN INDICATION
     Dosage: UNK
     Route: 065
  2. FAMOTIDINE. [Concomitant]
     Active Substance: FAMOTIDINE
     Indication: PRODUCT USED FOR UNKNOWN INDICATION
     Dosage: UNK
     Route: 065
  3. TEMESTA [Concomitant]
     Indication: PRODUCT USED FOR UNKNOWN INDICATION
     Dosage: UNK
     Route: 065
  4. TRIMEBUTINE [Concomitant]
     Active Substance: TRIMEBUTINE
     Indication: PRODUCT USED FOR UNKNOWN INDICATION
     Dosage: UNK
     Route: 065
  5. ACLASTA [Suspect]
     Active Substance: ZOLEDRONIC ACID
     Indication: OSTEOPOROSIS
     Dosage: 5 MG, ONCE/SINGLE
     Route: 041
     Dates: start: 20200605, end: 20200605

REACTIONS (12)
  - Pain in extremity [Unknown]
  - Red blood cell count increased [Recovered/Resolved]
  - Hyperleukocytosis [Recovered/Resolved]
  - Skin mass [Unknown]
  - Peripheral swelling [Recovered/Resolved]
  - Inflammation [Recovering/Resolving]
  - Pain [Recovering/Resolving]
  - C-reactive protein increased [Recovered/Resolved]
  - Red blood cell sedimentation rate increased [Recovered/Resolved]
  - Arthralgia [Unknown]
  - Oedema peripheral [Recovering/Resolving]
  - Nodule [Recovered/Resolved]

NARRATIVE: CASE EVENT DATE: 20200605
